FAERS Safety Report 10035660 (Version 2)
Quarter: 2014Q2

REPORT INFORMATION
  Report Type: Spontaneous
  Country: CH (occurrence: None)
  Receive Date: 20140321
  Receipt Date: 20140528
  Transmission Date: 20141212
  Serious: Yes (Life-Threatening, Other)
  Sender: FDA-Public Use
  Company Number: UTC-045844

PATIENT
  Age: 40 Year
  Sex: Male

DRUGS (4)
  1. REMODULIN (INJECTION FOR INFUSION) (TREPROSTINIL SODIUM) [Suspect]
     Indication: PULMONARY ARTERIAL HYPERTENSION
     Route: 058
     Dates: start: 20131127, end: 20140127
  2. TRACLEER (BOSENTAN) [Concomitant]
  3. SILDENAFIL (SILDENAFIL) [Concomitant]
  4. MARCOUMAR (PHENPROCOUMON) [Concomitant]

REACTIONS (3)
  - Hypersensitivity [None]
  - Injection site hypersensitivity [None]
  - Dermatitis allergic [None]
